FAERS Safety Report 19015549 (Version 1)
Quarter: 2021Q1

REPORT INFORMATION
  Report Type: Spontaneous
  Country: US (occurrence: US)
  Receive Date: 20210317
  Receipt Date: 20210317
  Transmission Date: 20210420
  Serious: Yes (Other)
  Sender: FDA-Public Use
  Company Number: US-STRIDES ARCOLAB LIMITED-2021SP000877

PATIENT
  Age: 77 Year
  Sex: Female

DRUGS (3)
  1. DIFLUPREDNATE [Suspect]
     Active Substance: DIFLUPREDNATE
     Indication: RETINAL VASCULITIS
     Dosage: UNK UNK, QID
     Route: 065
  2. PREDNISOLONE. [Suspect]
     Active Substance: PREDNISOLONE
     Indication: RETINAL VASCULITIS
     Dosage: 40 MILLIGRAM, PER DAY
     Route: 065
  3. BROLUCIZUMAB. [Concomitant]
     Active Substance: BROLUCIZUMAB
     Indication: NEOVASCULAR AGE-RELATED MACULAR DEGENERATION
     Dosage: UNK

REACTIONS (1)
  - Drug ineffective [Unknown]
